FAERS Safety Report 9009716 (Version 4)
Quarter: 2014Q1

REPORT INFORMATION
  Report Type: Spontaneous
  Country: US (occurrence: US)
  Receive Date: 20130110
  Receipt Date: 20140112
  Transmission Date: 20141002
  Serious: Yes (Hospitalization, Other)
  Sender: FDA-Public Use
  Company Number: US-009507513-1301USA002437

PATIENT
  Sex: Female
  Weight: 107.3 kg

DRUGS (2)
  1. NUVARING [Suspect]
     Indication: CONTRACEPTION
     Dosage: 3 WEEKS IN AND 1 WEEK OUT
     Route: 067
     Dates: start: 20101020, end: 20110112
  2. ZOLOFT [Concomitant]
     Indication: PRODUCT USED FOR UNKNOWN INDICATION
     Dosage: 100 MG, QD

REACTIONS (10)
  - Pneumonia [Recovering/Resolving]
  - Pulmonary embolism [Recovering/Resolving]
  - Pulmonary infarction [Recovering/Resolving]
  - Menorrhagia [Unknown]
  - Syncope [Unknown]
  - Presyncope [Unknown]
  - Cardiac murmur [Unknown]
  - Spinal pain [Unknown]
  - Pain in extremity [Unknown]
  - Fatigue [Unknown]
